FAERS Safety Report 4364107-X (Version None)
Quarter: 2004Q2

REPORT INFORMATION
  Report Type: 
  Country: None (occurrence: None)
  Receive Date: 20040525
  Receipt Date: 20040514
  Transmission Date: 20050107
  Serious: Yes (Hospitalization)
  Sender: FDA-Public Use
  Company Number: US-BRISTOL-MYERS SQUIBB COMPANY-12587200

PATIENT
  Age: 63 Year
  Sex: Male

DRUGS (7)
  1. CARBOPLATIN [Suspect]
     Indication: NON-SMALL CELL LUNG CANCER
     Dates: start: 20031201
  2. TAXOL [Suspect]
     Indication: NON-SMALL CELL LUNG CANCER
     Dates: start: 20031201
  3. DEXAMETHASONE [Suspect]
     Indication: NON-SMALL CELL LUNG CANCER
     Dates: start: 20031201
  4. ALBUTEROL [Concomitant]
     Indication: CHRONIC OBSTRUCTIVE AIRWAYS DISEASE
  5. COMBIVENT [Concomitant]
     Indication: CHRONIC OBSTRUCTIVE AIRWAYS DISEASE
  6. OXYCODONE [Concomitant]
  7. CONTRAST AGENT [Concomitant]

REACTIONS (1)
  - RENAL FAILURE ACUTE [None]
